FAERS Safety Report 12836636 (Version 1)
Quarter: 2016Q4

REPORT INFORMATION
  Report Type: Spontaneous
  Country: US (occurrence: US)
  Receive Date: 20161011
  Receipt Date: 20161011
  Transmission Date: 20170207
  Serious: No
  Sender: FDA-Public Use
  Company Number: None

PATIENT
  Sex: Male
  Weight: 117.94 kg

DRUGS (2)
  1. COSENTYX [Suspect]
     Active Substance: SECUKINUMAB
     Indication: PSORIASIS
     Dosage: COSENTYX 300MG SUBCUTANEOUSLY Q4WEEKS
     Route: 058
     Dates: start: 201607
  2. OTEZLA [Suspect]
     Active Substance: APREMILAST
     Dosage: OTEZLA 30MG - ORALLY - 1BID
     Route: 048
     Dates: start: 201601

REACTIONS (1)
  - Incorrect dose administered [None]
